FAERS Safety Report 20864377 (Version 2)
Quarter: 2022Q3

REPORT INFORMATION
  Report Type: Report from Study
  Country: US (occurrence: US)
  Receive Date: 20220523
  Receipt Date: 20220926
  Transmission Date: 20221027
  Serious: Yes (Other)
  Sender: FDA-Public Use
  Company Number: US-ABBVIE-22K-163-4405710-00

PATIENT
  Sex: Male

DRUGS (1)
  1. IMBRUVICA [Suspect]
     Active Substance: IBRUTINIB
     Indication: Waldenstrom^s macroglobulinaemia
     Route: 048
     Dates: start: 201805, end: 202209

REACTIONS (4)
  - Prostate cancer metastatic [Unknown]
  - Procedural complication [Unknown]
  - Prostatic specific antigen increased [Unknown]
  - Blood immunoglobulin M abnormal [Unknown]

NARRATIVE: CASE EVENT DATE: 20220101
